FAERS Safety Report 19865829 (Version 1)
Quarter: 2021Q3

REPORT INFORMATION
  Report Type: Spontaneous
  Country: RO (occurrence: RO)
  Receive Date: 20210921
  Receipt Date: 20210921
  Transmission Date: 20211014
  Serious: Yes (Other)
  Sender: FDA-Public Use
  Company Number: RO-009507513-2109ROM003960

PATIENT
  Age: 58 Year
  Sex: Male

DRUGS (1)
  1. MK?3475 [Suspect]
     Active Substance: PEMBROLIZUMAB
     Indication: NON-SMALL CELL LUNG CANCER

REACTIONS (3)
  - Leukopenia [Unknown]
  - Asthenia [Unknown]
  - Fatigue [Unknown]
